FAERS Safety Report 25259521 (Version 2)
Quarter: 2025Q3

REPORT INFORMATION
  Report Type: Spontaneous
  Country: US (occurrence: US)
  Receive Date: 20250501
  Receipt Date: 20250828
  Transmission Date: 20251021
  Serious: No
  Sender: LUPIN
  Company Number: US-LUPIN PHARMACEUTICALS INC.-2025-03569

PATIENT
  Age: 55 Year
  Weight: 72.562 kg

DRUGS (1)
  1. PREDNISOLONE ACETATE [Suspect]
     Active Substance: PREDNISOLONE ACETATE
     Indication: Uveitis
     Dosage: 1 DROP 3 TIMES A DAY

REACTIONS (5)
  - Extra dose administered [Unknown]
  - Product expiration date issue [Unknown]
  - Product lot number issue [Unknown]
  - Drug delivery system issue [Unknown]
  - No adverse event [Unknown]
